FAERS Safety Report 6008835-9 (Version None)
Quarter: 2008Q4

REPORT INFORMATION
  Report Type: 
  Country: None (occurrence: None)
  Receive Date: 20081217
  Receipt Date: 20080129
  Transmission Date: 20090506
  Serious: No
  Sender: FDA-Public Use
  Company Number: US-AMGEN-KDL259328

PATIENT
  Sex: Female
  Weight: 54.5 kg

DRUGS (4)
  1. ENBREL [Suspect]
     Indication: RHEUMATOID ARTHRITIS
     Route: 058
     Dates: start: 20071005, end: 20071228
  2. METHOTREXATE [Concomitant]
     Route: 048
     Dates: start: 20060501
  3. PREDNISONE TAB [Concomitant]
     Route: 048
  4. CELEBREX [Concomitant]

REACTIONS (9)
  - ABDOMINAL DISTENSION [None]
  - ABDOMINAL PAIN [None]
  - DIARRHOEA [None]
  - IRRITABILITY [None]
  - NAUSEA [None]
  - RHEUMATOID ARTHRITIS [None]
  - SKIN EXFOLIATION [None]
  - SWELLING [None]
  - VOMITING [None]
